FAERS Safety Report 11423237 (Version 1)
Quarter: 2015Q3

REPORT INFORMATION
  Report Type: Spontaneous
  Country: US (occurrence: None)
  Receive Date: 20150826
  Receipt Date: 20150826
  Transmission Date: 20151125
  Serious: Yes (Other)
  Sender: FDA-Public Use
  Company Number: None

PATIENT
  Age: 60 Year
  Sex: Female
  Weight: 115.21 kg

DRUGS (5)
  1. FISH OIL [Concomitant]
     Active Substance: FISH OIL
  2. VITAMIN D [Concomitant]
     Active Substance: CHOLECALCIFEROL
  3. PROBIOTICS [Concomitant]
     Active Substance: PROBIOTICS NOS
  4. CLINDAMYCIN [Suspect]
     Active Substance: CLINDAMYCIN\CLINDAMYCIN PHOSPHATE
     Indication: PROPHYLAXIS
     Route: 048
     Dates: start: 20150620, end: 20150625
  5. GLUCOSAMINE [Concomitant]
     Active Substance: GLUCOSAMINE

REACTIONS (2)
  - Clostridium difficile infection [None]
  - Irritable bowel syndrome [None]

NARRATIVE: CASE EVENT DATE: 20150619
